FAERS Safety Report 10510425 (Version 1)
Quarter: 2014Q4

REPORT INFORMATION
  Report Type: Spontaneous
  Country: SA (occurrence: None)
  Receive Date: 20141009
  Receipt Date: 20141009
  Transmission Date: 20150528
  Serious: Yes (Hospitalization)
  Sender: FDA-Public Use
  Company Number: None

PATIENT
  Age: 57 Year
  Sex: Male
  Weight: 60 kg

DRUGS (1)
  1. NASONEX [Suspect]
     Active Substance: MOMETASONE FUROATE
     Indication: SINUSITIS
     Dosage: 2 SPRAYS IN ECH ONCE DAILY NASAL SPRAY
     Route: 045
     Dates: start: 20140802, end: 20140814

REACTIONS (1)
  - Diplopia [None]

NARRATIVE: CASE EVENT DATE: 20140802
